FAERS Safety Report 6964829-8 (Version None)
Quarter: 2010Q3

REPORT INFORMATION
  Report Type: 
  Country: None (occurrence: None)
  Receive Date: 20100903
  Receipt Date: 20100824
  Transmission Date: 20110219
  Serious: Yes (Hospitalization)
  Sender: FDA-Public Use
  Company Number: US-JNJFOC-20100808527

PATIENT
  Sex: Female
  Weight: 56.3 kg

DRUGS (4)
  1. INFLIXIMAB, RECOMBINANT [Suspect]
     Indication: CROHN'S DISEASE
  2. CIMZIA [Concomitant]
  3. CELEXA [Concomitant]
  4. IMODIUM [Concomitant]

REACTIONS (2)
  - COLOSTOMY CLOSURE [None]
  - CROHN'S DISEASE [None]
